FAERS Safety Report 9562393 (Version 2)
Quarter: 2013Q3

REPORT INFORMATION
  Report Type: Spontaneous
  Country: US (occurrence: US)
  Receive Date: 20130927
  Receipt Date: 20130927
  Transmission Date: 20140515
  Serious: Yes (Other)
  Sender: FDA-Public Use
  Company Number: US-ELI_LILLY_AND_COMPANY-US201308003600

PATIENT
  Sex: Female
  Weight: 62.13 kg

DRUGS (9)
  1. HUMALOG LISPRO [Suspect]
     Indication: DIABETES MELLITUS
  2. LANTUS [Concomitant]
  3. SYNTHROID [Concomitant]
  4. CARDIZEM                           /00489701/ [Concomitant]
     Dosage: 360 MG, UNK
  5. LOVASTATIN [Concomitant]
  6. SENSIPAR [Concomitant]
  7. RENVELA [Concomitant]
  8. HECTOROL [Concomitant]
     Dosage: 2.5 MG, UNK
  9. LEXAPRO [Concomitant]
     Dosage: 20 MG, UNK

REACTIONS (1)
  - Renal failure chronic [Not Recovered/Not Resolved]
